FAERS Safety Report 5857246-5 (Version None)
Quarter: 2008Q3

REPORT INFORMATION
  Report Type: 
  Country: None (occurrence: None)
  Receive Date: 20080821
  Receipt Date: 20080730
  Transmission Date: 20090109
  Serious: Yes (Death, Life-Threatening, Hospitalization)
  Sender: FDA-Public Use
  Company Number: 000680

PATIENT
  Age: 64 Year
  Sex: Female

DRUGS (10)
  1. BUSULFEX [Suspect]
     Indication: STEM CELL TRANSPLANT
     Dosage: 5  ML, INTRAVENOUS;10 ML, INTRAVENOUS; 20 ML, INTRAVENOUS
     Route: 042
     Dates: start: 20070723, end: 20070723
  2. BUSULFEX [Suspect]
     Indication: STEM CELL TRANSPLANT
     Dosage: 5  ML, INTRAVENOUS;10 ML, INTRAVENOUS; 20 ML, INTRAVENOUS
     Route: 042
     Dates: start: 20070723, end: 20070724
  3. BUSULFEX [Suspect]
     Indication: STEM CELL TRANSPLANT
     Dosage: 5  ML, INTRAVENOUS;10 ML, INTRAVENOUS; 20 ML, INTRAVENOUS
     Route: 042
     Dates: start: 20070724, end: 20070727
  4. BUSULFEX [Suspect]
     Indication: STEM CELL TRANSPLANT
     Dosage: 5  ML, INTRAVENOUS;10 ML, INTRAVENOUS; 20 ML, INTRAVENOUS
     Route: 042
     Dates: start: 20070728, end: 20080728
  5. FLUDARABINE PHOSPHATE [Concomitant]
  6. VALPROATE SODIUM [Concomitant]
  7. NARTOGRASTIM (NARTOGRASTIM) [Concomitant]
  8. METHOTREXATE [Concomitant]
  9. CYCLOSPORINE [Concomitant]
  10. TACROLIMUS [Concomitant]

REACTIONS (26)
  - ACUTE GRAFT VERSUS HOST DISEASE IN SKIN [None]
  - ACUTE RESPIRATORY DISTRESS SYNDROME [None]
  - ANOREXIA [None]
  - BLOOD BILIRUBIN INCREASED [None]
  - BONE MARROW TRANSPLANT REJECTION [None]
  - BRONCHOALVEOLAR LAVAGE ABNORMAL [None]
  - CANDIDIASIS [None]
  - CONVULSION [None]
  - DIARRHOEA [None]
  - DISSEMINATED INTRAVASCULAR COAGULATION [None]
  - ENTEROCOCCAL INFECTION [None]
  - HYPERPHOSPHATASAEMIA [None]
  - HYPOKALAEMIA [None]
  - HYPOXIA [None]
  - MALAISE [None]
  - NAUSEA [None]
  - NEUTROPENIA [None]
  - NO THERAPEUTIC RESPONSE [None]
  - PANCREATITIS ACUTE [None]
  - PNEUMONIA BACTERIAL [None]
  - PNEUMONIA CYTOMEGALOVIRAL [None]
  - PNEUMONIA STAPHYLOCOCCAL [None]
  - PNEUMONIA VIRAL [None]
  - STENOTROPHOMONAS INFECTION [None]
  - STOMATITIS [None]
  - URINE OUTPUT DECREASED [None]
